FAERS Safety Report 4277484-5 (Version None)
Quarter: 2004Q1

REPORT INFORMATION
  Report Type: 
  Country: None (occurrence: None)
  Receive Date: 20040121
  Receipt Date: 20040121
  Transmission Date: 20041129
  Serious: Yes (Other)
  Sender: FDA-Public Use
  Company Number: None

PATIENT
  Age: 31 Year
  Sex: Female
  Weight: 63.5036 kg

DRUGS (2)
  1. SUDAFED 12 HOUR [Suspect]
     Indication: NASAL CONGESTION
     Dosage: 1 PILL DAY ORAL
     Route: 048
     Dates: start: 20040112, end: 20040115
  2. SUDAFED 12 HOUR [Suspect]
     Indication: NASOPHARYNGITIS
     Dosage: 1 PILL DAY ORAL
     Route: 048
     Dates: start: 20040112, end: 20040115

REACTIONS (1)
  - TACHYCARDIA [None]
